FAERS Safety Report 10757885 (Version 1)
Quarter: 2015Q1

REPORT INFORMATION
  Report Type: Spontaneous
  Country: US (occurrence: None)
  Receive Date: 20150202
  Receipt Date: 20150202
  Transmission Date: 20150721
  Serious: Yes (Hospitalization, Other)
  Sender: FDA-Public Use
  Company Number: None

PATIENT
  Age: 51 Year
  Sex: Male
  Weight: 82.7 kg

DRUGS (2)
  1. ATENOLOL 50 MG [Suspect]
     Active Substance: ATENOLOL
     Route: 048
     Dates: start: 20140919, end: 20141020
  2. ATENOLOL 100 MG [Suspect]
     Active Substance: ATENOLOL
     Indication: ATRIAL FIBRILLATION
     Dosage: 1 TABLET
     Route: 048
     Dates: start: 20140628, end: 20140701

REACTIONS (6)
  - Gastrointestinal disorder [None]
  - Abdominal pain upper [None]
  - Product substitution issue [None]
  - Muscle twitching [None]
  - Haematochezia [None]
  - Similar reaction on previous exposure to drug [None]

NARRATIVE: CASE EVENT DATE: 20141007
